FAERS Safety Report 9279660 (Version 2)
Quarter: 2013Q2

REPORT INFORMATION
  Report Type: Spontaneous
  Country: US (occurrence: US)
  Receive Date: 20130509
  Receipt Date: 20130628
  Transmission Date: 20140414
  Serious: Yes (Hospitalization)
  Sender: FDA-Public Use
  Company Number: US-BIOGENIDEC-2013BI040643

PATIENT
  Age: 66 Year
  Sex: Female

DRUGS (2)
  1. AVONEX [Suspect]
     Indication: MULTIPLE SCLEROSIS
     Route: 030
     Dates: start: 20071001, end: 20120610
  2. AVONEX [Suspect]
     Indication: MULTIPLE SCLEROSIS
     Route: 030
     Dates: start: 20120704, end: 20130426

REACTIONS (5)
  - Injection site bruising [Recovered/Resolved]
  - Knee operation [Unknown]
  - Contusion [Recovered/Resolved]
  - Muscular weakness [Recovered/Resolved]
  - Injection site erythema [Not Recovered/Not Resolved]
